FAERS Safety Report 9417650 (Version 2)
Quarter: 2013Q3

REPORT INFORMATION
  Report Type: Spontaneous
  Country: CN (occurrence: CN)
  Receive Date: 20130724
  Receipt Date: 20130725
  Transmission Date: 20140515
  Serious: Yes (Hospitalization)
  Sender: FDA-Public Use
  Company Number: CN-PFIZER INC-2013214653

PATIENT
  Sex: Male

DRUGS (1)
  1. CELECOXIB [Suspect]
     Indication: ARTHRALGIA
     Dosage: 200 MG, 1X/DAY
     Route: 048

REACTIONS (2)
  - Herpes zoster [Not Recovered/Not Resolved]
  - Hypoaesthesia [Unknown]
